FAERS Safety Report 9324008 (Version 1)
Quarter: 2013Q2

REPORT INFORMATION
  Report Type: Spontaneous
  Country: FR (occurrence: FR)
  Receive Date: 20130603
  Receipt Date: 20130603
  Transmission Date: 20140414
  Serious: Yes (Hospitalization)
  Sender: FDA-Public Use
  Company Number: FR-PFIZER INC-2013162701

PATIENT
  Age: 90 Year
  Sex: Female

DRUGS (8)
  1. ALDACTONE [Suspect]
     Dosage: 75 MG, 1X/DAY
     Route: 048
     Dates: start: 201302, end: 20130303
  2. CLOMIPRAMINE [Suspect]
     Dosage: 10 MG FILM-COATED TABLET
     Route: 048
     Dates: end: 20130303
  3. TOPALGIC [Suspect]
     Dosage: 100 MG, 1X/DAY
     Route: 048
     Dates: end: 20130303
  4. ZOLPIDEM [Suspect]
     Dosage: 10 MG, 1X/DAY
     Route: 048
     Dates: end: 20130304
  5. ALPRAZOLAM [Suspect]
     Dosage: 1 DF, 1X/DAY
     Route: 048
     Dates: end: 20130304
  6. INEXIUM [Concomitant]
  7. CORTANCYL [Concomitant]
  8. DOLIPRANE [Concomitant]

REACTIONS (3)
  - Confusional state [Recovering/Resolving]
  - Urinary retention [Recovered/Resolved]
  - Renal failure acute [Recovering/Resolving]
